FAERS Safety Report 5632234-2 (Version None)
Quarter: 2008Q1

REPORT INFORMATION
  Report Type: 
  Country: None (occurrence: None)
  Receive Date: 20080212
  Receipt Date: 20080204
  Transmission Date: 20080703
  Serious: Yes (Life-Threatening, Hospitalization, Other)
  Sender: FDA-Public Use
  Company Number: 151-21880-08020385

PATIENT
  Age: 62 Year
  Sex: Male

DRUGS (3)
  1. REVLIMID [Suspect]
     Indication: MYELOMA RECURRENCE
     Dosage: ORAL
     Route: 048
     Dates: start: 20071101, end: 20071225
  2. DEXAMETHASONE TAB [Concomitant]
  3. ADRIAMYCIN PFS [Concomitant]

REACTIONS (4)
  - ARTERIAL STENOSIS [None]
  - BLINDNESS UNILATERAL [None]
  - CAROTID ARTERY THROMBOSIS [None]
  - EJECTION FRACTION DECREASED [None]
